FAERS Safety Report 8337189-8 (Version None)
Quarter: 2012Q2

REPORT INFORMATION
  Report Type: 
  Country: None (occurrence: None)
  Receive Date: 20120504
  Receipt Date: 20120503
  Transmission Date: 20120825
  Serious: Yes (Life-Threatening, Disabling, Other)
  Sender: FDA-Public Use
  Company Number: PHHY2011CR43193

PATIENT
  Age: 61 Year
  Sex: Female

DRUGS (2)
  1. ATENOLOL [Concomitant]
     Dosage: 50 MG, Q12H
     Route: 048
  2. ZOLEDRONOC ACID [Suspect]
     Indication: OSTEOPOROSIS
     Route: 042

REACTIONS (6)
  - HYPOKINESIA [None]
  - DYSPNOEA [None]
  - CHEST DISCOMFORT [None]
  - PAIN [None]
  - FEELING ABNORMAL [None]
  - PALPITATIONS [None]
